FAERS Safety Report 8425483-1 (Version None)
Quarter: 2012Q2

REPORT INFORMATION
  Report Type: 
  Country: None (occurrence: None)
  Receive Date: 20120611
  Receipt Date: 20120601
  Transmission Date: 20120825
  Serious: Yes (Other)
  Sender: FDA-Public Use
  Company Number: US-US-EMD SERONO, INC.-7027725

PATIENT
  Sex: Male

DRUGS (7)
  1. ROBAXIN [Concomitant]
     Indication: SPINAL OSTEOARTHRITIS
  2. OXYCONTIN [Concomitant]
     Indication: PAIN
  3. METHADONE HCL [Concomitant]
     Indication: PAIN
  4. OXYCODONE HCL [Concomitant]
     Indication: PAIN
  5. METHADONE HCL [Concomitant]
     Indication: SPINAL OSTEOARTHRITIS
     Dates: start: 20100101, end: 20110611
  6. REBIF [Suspect]
     Indication: MULTIPLE SCLEROSIS
     Route: 058
     Dates: start: 20080627
  7. VALIUM [Concomitant]
     Indication: SPINAL OSTEOARTHRITIS

REACTIONS (2)
  - CARDIAC FAILURE CONGESTIVE [None]
  - MULTIPLE SCLEROSIS RELAPSE [None]
